FAERS Safety Report 9861728 (Version 1)
Quarter: 2014Q1

REPORT INFORMATION
  Report Type: Spontaneous
  Country: US (occurrence: None)
  Receive Date: 20140131
  Receipt Date: 20140131
  Transmission Date: 20141002
  Serious: Yes (Hospitalization)
  Sender: FDA-Public Use
  Company Number: None

PATIENT
  Age: 55 Year
  Sex: Female
  Weight: 65.7 kg

DRUGS (1)
  1. RIVAROXABAN [Suspect]
     Indication: PULMONARY EMBOLISM
     Dosage: 1 PILL BID ORAL

REACTIONS (2)
  - Abdominal wall haematoma [None]
  - Retroperitoneal haemorrhage [None]
